FAERS Safety Report 4379735-5 (Version None)
Quarter: 2004Q2

REPORT INFORMATION
  Report Type: 
  Country: None (occurrence: None)
  Receive Date: 20040617
  Receipt Date: 20040422
  Transmission Date: 20050107
  Serious: Yes (Hospitalization)
  Sender: FDA-Public Use
  Company Number: CH-GLAXOSMITHKLINE-B0330918A

PATIENT
  Age: 75 Year
  Sex: Female
  Weight: 78 kg

DRUGS (5)
  1. LEUKERAN [Suspect]
     Dosage: 2MG FOUR TIMES PER DAY
     Route: 048
     Dates: start: 20031010, end: 20040414
  2. ACENOCOUMAROL [Concomitant]
     Indication: PULMONARY EMBOLISM
     Route: 048
     Dates: start: 20040105
  3. ZOLPIDEM [Concomitant]
     Indication: SLEEP DISORDER
     Dosage: 10MG PER DAY
     Route: 048
  4. CEFPODOXIME PROXETIL [Concomitant]
     Dosage: 1TAB PER DAY
     Route: 048
     Dates: start: 20040331, end: 20040406
  5. ACETAMINOPHEN [Concomitant]
     Route: 048
     Dates: end: 20040410

REACTIONS (6)
  - BRONCHOPNEUMONIA [None]
  - DRUG TOXICITY [None]
  - DYSPNOEA EXACERBATED [None]
  - LUNG INFILTRATION [None]
  - LYMPHADENOPATHY MEDIASTINAL [None]
  - PYREXIA [None]
